FAERS Safety Report 8711700 (Version 3)
Quarter: 2012Q4

REPORT INFORMATION
  Report Type: Report from Study
  Country: GB (occurrence: GB)
  Receive Date: 20120807
  Receipt Date: 20120906
  Transmission Date: 20130627
  Serious: Yes (Other)
  Sender: FDA-Public Use
  Company Number: GB-ROCHE-1093298

PATIENT
  Age: 62 Year
  Sex: Female
  Weight: 65.2 kg

DRUGS (13)
  1. MABTHERA [Suspect]
     Indication: B-CELL LYMPHOMA
     Route: 042
     Dates: start: 20120105
  2. MABTHERA [Suspect]
     Route: 058
     Dates: start: 20120126
  3. MABTHERA [Suspect]
     Route: 058
     Dates: start: 20120216
  4. MABTHERA [Suspect]
     Route: 058
     Dates: start: 20120308
  5. MABTHERA [Suspect]
     Route: 058
     Dates: start: 20120329
  6. MABTHERA [Suspect]
     Route: 058
     Dates: start: 20120419
  7. MABTHERA [Suspect]
     Route: 058
     Dates: start: 20120516
  8. MABTHERA [Suspect]
     Route: 058
     Dates: start: 20120607
  9. AMOXICILLIN\CLAVULANATE POTASSIUM [Concomitant]
     Indication: SINUSITIS
     Route: 065
     Dates: start: 20120220, end: 20120304
  10. DOXYCYCLINE [Concomitant]
     Indication: SINUSITIS
     Route: 065
     Dates: start: 20120221, end: 20120319
  11. PARACETAMOL [Concomitant]
     Indication: TENDONITIS
     Route: 065
     Dates: start: 20120305, end: 20120626
  12. IBUPROFEN [Concomitant]
     Indication: TENDONITIS
     Route: 065
     Dates: start: 20120305, end: 20120626
  13. CLARITHROMYCIN [Concomitant]
     Indication: SINUS DISORDER
     Route: 065
     Dates: start: 20120419, end: 20120531

REACTIONS (1)
  - Infusion related reaction [Recovered/Resolved]
